FAERS Safety Report 18936159 (Version 3)
Quarter: 2022Q1

REPORT INFORMATION
  Report Type: Spontaneous
  Country: DE (occurrence: DE)
  Receive Date: 20210224
  Receipt Date: 20220105
  Transmission Date: 20220424
  Serious: Yes (Hospitalization, Other)
  Sender: FDA-Public Use
  Company Number: None

PATIENT
  Age: 34 Year
  Sex: Female
  Weight: 53 kg

DRUGS (19)
  1. COTRIM [Interacting]
     Active Substance: SULFAMETHOXAZOLE\TRIMETHOPRIM
     Indication: C-reactive protein increased
     Dosage: 2DOSAGEFORM, COTRIM FORTE 960 MG, PAUSED
     Route: 048
     Dates: start: 20201007, end: 20201011
  2. COTRIM [Interacting]
     Active Substance: SULFAMETHOXAZOLE\TRIMETHOPRIM
     Indication: Cystic fibrosis
  3. ELEXACAFTOR\IVACAFTOR\TEZACAFTOR [Interacting]
     Active Substance: ELEXACAFTOR\IVACAFTOR\TEZACAFTOR
     Indication: Cystic fibrosis
     Dosage: FOR ACTIVE INGREDIENT IVACAFTOR THE STRENGTH IS 75 MILLIGRAM .?FOR ACTIVE INGREDIENT ELEXACAFTOR THE
     Dates: start: 20201210, end: 202012
  4. ELEXACAFTOR\IVACAFTOR\TEZACAFTOR [Interacting]
     Active Substance: ELEXACAFTOR\IVACAFTOR\TEZACAFTOR
     Dosage: FOR ACTIVE INGREDIENT IVACAFTOR THE STRENGTH IS 75 MILLIGRAM .?FOR ACTIVE INGREDIENT ELEXACAFTOR TH
     Dates: start: 202012, end: 202012
  5. ELEXACAFTOR\IVACAFTOR\TEZACAFTOR [Interacting]
     Active Substance: ELEXACAFTOR\IVACAFTOR\TEZACAFTOR
     Dosage: 2 DOSAGE FORMS DAILY; 2 TABLETS IN THE MORNING?FOR ACTIVE INGREDIENT IVACAFTOR THE STRENGTH IS 75 MI
     Route: 048
     Dates: start: 20200929
  6. ELEXACAFTOR\IVACAFTOR\TEZACAFTOR [Interacting]
     Active Substance: ELEXACAFTOR\IVACAFTOR\TEZACAFTOR
     Dosage: FOR ACTIVE INGREDIENT IVACAFTOR THE STRENGTH IS 75 MILLIGRAM .?FOR ACTIVE INGREDIENT ELEXACAFTOR TH
     Dates: start: 202012
  7. KALYDECO [Interacting]
     Active Substance: IVACAFTOR
     Indication: Cystic fibrosis
     Dosage: 150MILLIGRAM, KALYDECO 150 MG
     Dates: start: 20201210, end: 202012
  8. KALYDECO [Interacting]
     Active Substance: IVACAFTOR
     Dosage: 150MILLIGRAM
  9. KALYDECO [Interacting]
     Active Substance: IVACAFTOR
     Dosage: 150 MILLIGRAM DAILY; 1 TABLET IN THE EVENING
     Route: 048
     Dates: start: 20200929
  10. KALYDECO [Interacting]
     Active Substance: IVACAFTOR
     Dosage: 150MILLIGRAM
     Dates: start: 202012
  11. OXYGEN [Concomitant]
     Active Substance: OXYGEN
     Dosage: 2 LITERS DAILY;   AT NIGHT, DURING THE DAY ONLY IN THE EVENT OF INFECTION AND HEAT
  12. PANCRELIPASE [Concomitant]
     Active Substance: PANCRELIPASE
     Dosage: MAX 8 / DAY, KREON 40000
  13. NOVORAPID [Concomitant]
     Active Substance: INSULIN ASPART
     Dosage: 5-8-0-0- IE AND AS NEEDED
  14. FLUTICASONE PROPIONATE\SALMETEROL XINAFOATE [Concomitant]
     Active Substance: FLUTICASONE PROPIONATE\SALMETEROL XINAFOATE
     Dosage: 2 DOSAGE FORMS DAILY; 1-0-1, VIANI 20/250
  15. FERROUS GLYCINE SULFATE [Concomitant]
     Active Substance: FERROUS GLYCINE SULFATE
     Dosage: 2 DOSAGE FORMS DAILY; 1-0-1
  16. ACETYLCYSTEINE [Concomitant]
     Active Substance: ACETYLCYSTEINE
     Dosage: ACC 600 MG
  17. URSODIOL [Concomitant]
     Active Substance: URSODIOL
     Dosage: 3 DOSAGE FORMS DAILY; 1-1-1, URSOFALK 500 MG
  18. SODIUM CHLORIDE [Concomitant]
     Active Substance: SODIUM CHLORIDE
     Dosage: 2 DOSAGE FORMS DAILY; 0.9 - 6 % 1-0-1
  19. FENOTEROL HYDROBROMIDE\IPRATROPIUM BROMIDE [Concomitant]
     Active Substance: FENOTEROL HYDROBROMIDE\IPRATROPIUM BROMIDE
     Dosage: 2-3 STROKES IF NECESSARY

REACTIONS (9)
  - Respiratory tract haemorrhage [Recovered/Resolved]
  - Bronchial secretion retention [Recovered/Resolved]
  - Secretion discharge [Recovered/Resolved]
  - Oxygen saturation decreased [Recovered/Resolved]
  - Sputum increased [Recovered/Resolved]
  - Heart rate increased [Recovered/Resolved]
  - Condition aggravated [Unknown]
  - Accidental overdose [Unknown]
  - Drug interaction [Unknown]

NARRATIVE: CASE EVENT DATE: 20201001
